FAERS Safety Report 6173817-3 (Version None)
Quarter: 2009Q2

REPORT INFORMATION
  Report Type: 
  Country: None (occurrence: None)
  Receive Date: 20090429
  Receipt Date: 20090429
  Transmission Date: 20091009
  Serious: No
  Sender: FDA-Public Use
  Company Number: None

PATIENT
  Age: 51 Year
  Sex: Female
  Weight: 64.4108 kg

DRUGS (2)
  1. RIFAMPIN [Suspect]
     Indication: TUBERCULOSIS
     Dosage: PO 2 DAYS OF USE
     Route: 048
  2. ISONIAZID [Suspect]
     Indication: TUBERCULOSIS
     Dosage: PO 2 DAYS OF USE
     Route: 048

REACTIONS (6)
  - CHROMATURIA [None]
  - MEDICATION ERROR [None]
  - PRODUCT CONTAINER ISSUE [None]
  - PRODUCT LABEL CONFUSION [None]
  - PRODUCT OUTER PACKAGING ISSUE [None]
  - WRONG DRUG ADMINISTERED [None]
